FAERS Safety Report 12737978 (Version 1)
Quarter: 2016Q3

REPORT INFORMATION
  Report Type: Spontaneous
  Country: US (occurrence: US)
  Receive Date: 20160912
  Receipt Date: 20160912
  Transmission Date: 20161109
  Serious: No
  Sender: FDA-Public Use
  Company Number: US-SA-2016SA112466

PATIENT
  Age: 81 Year
  Sex: Female
  Weight: 81.64 kg

DRUGS (9)
  1. ELIQUIS [Concomitant]
     Active Substance: APIXABAN
     Indication: ANTICOAGULANT THERAPY
  2. OXYBUTYNIN [Concomitant]
     Active Substance: OXYBUTYNIN
  3. DILTIAZEM. [Concomitant]
     Active Substance: DILTIAZEM
  4. TOUJEO [Suspect]
     Active Substance: INSULIN GLARGINE
     Indication: DIABETES MELLITUS
     Dosage: DOSE:16 UNIT(S)
     Route: 065
  5. PREVACID [Concomitant]
     Active Substance: LANSOPRAZOLE
     Indication: GASTRIC DISORDER
  6. ZOCOR [Concomitant]
     Active Substance: SIMVASTATIN
  7. SOLOSTAR [Concomitant]
     Active Substance: DEVICE
     Indication: DIABETES MELLITUS
  8. GLIPIZIDE. [Concomitant]
     Active Substance: GLIPIZIDE
     Indication: DIABETES MELLITUS
  9. CARBIDOPA/LEVODOPA [Concomitant]
     Indication: RESTLESS LEGS SYNDROME

REACTIONS (3)
  - Bronchitis [Unknown]
  - Cough [Unknown]
  - Dysphonia [Unknown]
